FAERS Safety Report 6553380-5 (Version None)
Quarter: 2010Q1

REPORT INFORMATION
  Report Type: 
  Country: None (occurrence: None)
  Receive Date: 20100127
  Receipt Date: 20090922
  Transmission Date: 20100710
  Serious: No
  Sender: FDA-Public Use
  Company Number: A0804792A

PATIENT
  Age: 45 Year
  Sex: Female

DRUGS (2)
  1. SUMATRIPTAN SUCCINATE [Suspect]
     Indication: MIGRAINE
     Dosage: 6ML UNKNOWN
  2. GSK AUTOINJECTOR [Suspect]
     Indication: MIGRAINE

REACTIONS (2)
  - INJECTION SITE PAIN [None]
  - PRODUCT QUALITY ISSUE [None]
